FAERS Safety Report 12186492 (Version 1)
Quarter: 2016Q1

REPORT INFORMATION
  Report Type: Spontaneous
  Country: SE (occurrence: SE)
  Receive Date: 20160317
  Receipt Date: 20160317
  Transmission Date: 20160526
  Serious: Yes (Other)
  Sender: FDA-Public Use
  Company Number: SE-009507513-1603SWE004563

PATIENT
  Age: 15 Year
  Sex: Female

DRUGS (2)
  1. INTRON A [Suspect]
     Active Substance: INTERFERON ALFA-2B
     Indication: CRANIOPHARYNGIOMA
     Dosage: 3X10^6 IU (ROUTE: INTRACYSTIC)
     Dates: start: 2014
  2. INTRON A [Suspect]
     Active Substance: INTERFERON ALFA-2B
     Dosage: 1.5X 10^6 IU (ROUTE: INTRACYSTIC)
     Dates: start: 2013

REACTIONS (4)
  - Influenza like illness [Unknown]
  - Visual field defect [Recovering/Resolving]
  - Visual acuity reduced [Not Recovered/Not Resolved]
  - Headache [Unknown]

NARRATIVE: CASE EVENT DATE: 2014
